FAERS Safety Report 6684961-6 (Version None)
Quarter: 2010Q2

REPORT INFORMATION
  Report Type: 
  Country: None (occurrence: None)
  Receive Date: 20100416
  Receipt Date: 20100407
  Transmission Date: 20101027
  Serious: Yes (Hospitalization, Other)
  Sender: FDA-Public Use
  Company Number: CA-AMGEN-KDL398538

PATIENT
  Sex: Male
  Weight: 77.2 kg

DRUGS (6)
  1. ENBREL [Suspect]
     Indication: RHEUMATOID ARTHRITIS
     Dates: start: 20090511, end: 20100209
  2. OMEPRAZOLE [Concomitant]
  3. METHOTREXATE [Concomitant]
     Route: 058
  4. DIOVAN [Concomitant]
  5. FOLIC ACID [Concomitant]
  6. ASPIRIN [Concomitant]

REACTIONS (5)
  - ARTHRALGIA [None]
  - ARTHRITIS [None]
  - DRUG INEFFECTIVE [None]
  - INFECTION [None]
  - LOSS OF CONSCIOUSNESS [None]
